FAERS Safety Report 6980247-0 (Version None)
Quarter: 2010Q3

REPORT INFORMATION
  Report Type: 
  Country: None (occurrence: None)
  Receive Date: 20100909
  Receipt Date: 20100831
  Transmission Date: 20110219
  Serious: Yes (Hospitalization, Other)
  Sender: FDA-Public Use
  Company Number: ENTC2010-0296

PATIENT
  Age: 61 Year
  Sex: Male

DRUGS (2)
  1. STALEVO 100 [Suspect]
     Indication: PARKINSONISM
     Dosage: 700 MG, QD
  2. MADOPAR (LEVODOPA) [Suspect]
     Indication: PARKINSONISM
     Dosage: 700 MG, QD

REACTIONS (3)
  - IMPULSE-CONTROL DISORDER [None]
  - PARAPHILIA [None]
  - SEXUALLY INAPPROPRIATE BEHAVIOUR [None]
